FAERS Safety Report 8333824-9 (Version None)
Quarter: 2012Q2

REPORT INFORMATION
  Report Type: 
  Country: None (occurrence: None)
  Receive Date: 20120503
  Receipt Date: 20120427
  Transmission Date: 20120825
  Serious: Yes (Hospitalization, Disabling)
  Sender: FDA-Public Use
  Company Number: US-B.I. PHARMACEUTICALS,INC./RIDGEFIELD-2012-BP-01134BP

PATIENT
  Sex: Female
  Weight: 80 kg

DRUGS (6)
  1. PRADAXA [Suspect]
     Indication: CEREBROVASCULAR ACCIDENT PROPHYLAXIS
     Dosage: 300 MG
     Route: 048
  2. LOVASTATIN [Concomitant]
  3. LASIX [Concomitant]
  4. PRADAXA [Suspect]
     Indication: ATRIAL FIBRILLATION
  5. ENALAPRIL MALEATE [Concomitant]
  6. ESTROGEN [Concomitant]

REACTIONS (1)
  - ISCHAEMIC STROKE [None]
